FAERS Safety Report 4291985-5 (Version None)
Quarter: 2004Q1

REPORT INFORMATION
  Report Type: 
  Country: None (occurrence: None)
  Receive Date: 20040210
  Receipt Date: 20040210
  Transmission Date: 20041129
  Serious: No
  Sender: FDA-Public Use
  Company Number: None

PATIENT
  Sex: Male
  Weight: 81.6475 kg

DRUGS (2)
  1. DITROPAN XL [Suspect]
     Indication: BENIGN PROSTATIC HYPERPLASIA
     Dosage: ONE PILL DAILY ORAL
     Route: 048
     Dates: start: 20040204, end: 20040228
  2. DITROPAN XL [Suspect]
     Indication: URINARY TRACT INFECTION
     Dosage: ONE PILL DAILY ORAL
     Route: 048
     Dates: start: 20040204, end: 20040228

REACTIONS (4)
  - ABDOMINAL PAIN UPPER [None]
  - BENIGN PROSTATIC HYPERPLASIA [None]
  - URINARY RETENTION [None]
  - URINARY TRACT INFECTION [None]
